FAERS Safety Report 21381966 (Version 2)
Quarter: 2022Q3

REPORT INFORMATION
  Report Type: Report from Study
  Country: CA (occurrence: CA)
  Receive Date: 20220927
  Receipt Date: 20220930
  Transmission Date: 20221027
  Serious: Yes (Hospitalization, Other)
  Sender: FDA-Public Use
  Company Number: CA-HLS-202201747

PATIENT
  Age: 57 Year
  Sex: Male

DRUGS (8)
  1. CLOZARIL [Suspect]
     Active Substance: CLOZAPINE
     Indication: Product used for unknown indication
     Route: 048
     Dates: start: 20220427
  2. CLOZARIL [Suspect]
     Active Substance: CLOZAPINE
     Indication: Product used for unknown indication
     Route: 065
     Dates: start: 20220626
  3. NICOTINE TRANSDERMAL SYSTEM [Concomitant]
     Active Substance: NICOTINE
     Indication: Product used for unknown indication
     Dosage: PATCH
     Route: 065
  4. ATROPINE SULFATE [Concomitant]
     Active Substance: ATROPINE SULFATE
     Indication: Product used for unknown indication
     Dosage: DROPS
     Route: 065
  5. LORAZEPAM [Concomitant]
     Active Substance: LORAZEPAM
     Indication: Product used for unknown indication
     Dosage: AS NEEDED
     Route: 065
  6. SEROQUEL [Concomitant]
     Active Substance: QUETIAPINE FUMARATE
     Indication: Product used for unknown indication
     Dosage: AS NEEDED
     Route: 065
  7. NALTREXONE [Concomitant]
     Active Substance: NALTREXONE
     Indication: Product used for unknown indication
     Route: 065
  8. POLYETHYLENE GLYCOLS [Concomitant]
     Active Substance: POLYETHYLENE GLYCOLS
     Indication: Product used for unknown indication
     Route: 065

REACTIONS (10)
  - Hallucination, auditory [Unknown]
  - Orthostatic hypotension [Unknown]
  - Cognitive disorder [Unknown]
  - Confusional state [Unknown]
  - Thinking abnormal [Unknown]
  - Dysarthria [Unknown]
  - Extrapyramidal disorder [Unknown]
  - Delirium [Unknown]
  - Delusion [Unknown]
  - Psychotic disorder [Unknown]
